FAERS Safety Report 10343023 (Version 2)
Quarter: 2014Q3

REPORT INFORMATION
  Report Type: Report from Study
  Country: US (occurrence: US)
  Receive Date: 20140725
  Receipt Date: 20140813
  Transmission Date: 20150326
  Serious: Yes (Life-Threatening, Hospitalization, Disabling, Other)
  Sender: FDA-Public Use
  Company Number: PHEH2014US014764

PATIENT
  Age: 28 Year
  Sex: Female

DRUGS (1)
  1. GILENYA [Suspect]
     Active Substance: FINGOLIMOD HYDROCHLORIDE
     Indication: MULTIPLE SCLEROSIS
     Dosage: 0.5 MG, ONCE DAILY
     Route: 048
     Dates: start: 20111116

REACTIONS (2)
  - Encephalitis [Recovering/Resolving]
  - Multiple sclerosis relapse [Unknown]

NARRATIVE: CASE EVENT DATE: 20140613
